FAERS Safety Report 7539556-9 (Version None)
Quarter: 2011Q2

REPORT INFORMATION
  Report Type: 
  Country: None (occurrence: None)
  Receive Date: 20110609
  Receipt Date: 20110609
  Transmission Date: 20111010
  Serious: No
  Sender: FDA-Public Use
  Company Number: None

PATIENT
  Age: 45 Year
  Sex: Male
  Weight: 94.3482 kg

DRUGS (1)
  1. LOVASTATIN [Suspect]
     Indication: DYSLIPIDAEMIA
     Dosage: 40MG OD PO
     Route: 048

REACTIONS (3)
  - TENDONITIS [None]
  - MUSCLE STRAIN [None]
  - MUSCLE SPASMS [None]
